FAERS Safety Report 8499346 (Version 6)
Quarter: 2012Q4

REPORT INFORMATION
  Report Type: 
  Country: US (occurrence: US)
  Receive Date: 20120409
  Receipt Date: 20121025
  Transmission Date: 20130627
  Serious: Yes (Other)
  Sender: FDA-Public Use
  Company Number: US-JNJFOC-20120402522

PATIENT
  Age: 58 Year
  Sex: Male
  Weight: 81.65 kg

DRUGS (18)
  1. SUDAFED CONGESTION MAXIMUM STRENGTH [Suspect]
     Indication: OROPHARYNGEAL PAIN
     Route: 048
     Dates: start: 20120329, end: 20120329
  2. SUDAFED CONGESTION MAXIMUM STRENGTH [Suspect]
     Indication: OROPHARYNGEAL PAIN
     Route: 048
     Dates: start: 20120330, end: 20120330
  3. SUDAFED CONGESTION MAXIMUM STRENGTH [Suspect]
     Indication: OROPHARYNGEAL PAIN
     Route: 048
     Dates: start: 20120328, end: 20120328
  4. SUDAFED CONGESTION MAXIMUM STRENGTH [Suspect]
     Indication: OROPHARYNGEAL PAIN
     Route: 048
     Dates: start: 20120327
  5. SUDAFED CONGESTION MAXIMUM STRENGTH [Suspect]
     Indication: SINUS CONGESTION
     Route: 048
     Dates: start: 20120328, end: 20120328
  6. SUDAFED CONGESTION MAXIMUM STRENGTH [Suspect]
     Indication: SINUS CONGESTION
     Route: 048
     Dates: start: 20120329, end: 20120329
  7. SUDAFED CONGESTION MAXIMUM STRENGTH [Suspect]
     Indication: SINUS CONGESTION
     Route: 048
     Dates: start: 20120330, end: 20120330
  8. SUDAFED CONGESTION MAXIMUM STRENGTH [Suspect]
     Indication: SINUS CONGESTION
     Route: 048
     Dates: start: 20120327
  9. SUDAFED CONGESTION MAXIMUM STRENGTH [Suspect]
     Indication: UPPER-AIRWAY COUGH SYNDROME
     Route: 048
     Dates: start: 20120329, end: 20120329
  10. SUDAFED CONGESTION MAXIMUM STRENGTH [Suspect]
     Indication: UPPER-AIRWAY COUGH SYNDROME
     Route: 048
     Dates: start: 20120330, end: 20120330
  11. SUDAFED CONGESTION MAXIMUM STRENGTH [Suspect]
     Indication: UPPER-AIRWAY COUGH SYNDROME
     Route: 048
     Dates: start: 20120328, end: 20120328
  12. SUDAFED CONGESTION MAXIMUM STRENGTH [Suspect]
     Indication: UPPER-AIRWAY COUGH SYNDROME
     Route: 048
     Dates: start: 20120327
  13. RAPAFLO [Suspect]
     Indication: PRODUCT USED FOR UNKNOWN INDICATION
     Route: 065
  14. BACTRIM [Suspect]
     Indication: PRODUCT USED FOR UNKNOWN INDICATION
     Route: 065
     Dates: end: 20120405
  15. CIPRO [Suspect]
     Indication: PRODUCT USED FOR UNKNOWN INDICATION
     Route: 065
     Dates: start: 20120405
  16. SULFA [Suspect]
     Indication: PRODUCT USED FOR UNKNOWN INDICATION
     Route: 065
  17. PYRIDIUM [Concomitant]
     Indication: PRODUCT USED FOR UNKNOWN INDICATION
     Route: 065
  18. VICODIN [Concomitant]
     Indication: PRODUCT USED FOR UNKNOWN INDICATION
     Route: 065

REACTIONS (17)
  - Anxiety [Recovered/Resolved]
  - Prostate cancer [Unknown]
  - Urinary retention [Recovered/Resolved]
  - Prostatitis [Recovered/Resolved]
  - Chills [Recovered/Resolved]
  - Stevens-Johnson syndrome [Recovered/Resolved]
  - General physical health deterioration [Recovered/Resolved]
  - Blood urine present [Recovered/Resolved]
  - Visual impairment [Recovered/Resolved]
  - Back pain [Recovered/Resolved]
  - Musculoskeletal chest pain [Recovered/Resolved]
  - Myalgia [Recovered/Resolved]
  - Painful defaecation [Recovered/Resolved]
  - Influenza [Recovered/Resolved]
  - Bladder outlet obstruction [None]
  - Drug hypersensitivity [None]
  - Genital discomfort [None]
